FAERS Safety Report 7575428-1 (Version None)
Quarter: 2011Q2

REPORT INFORMATION
  Report Type: 
  Country: None (occurrence: None)
  Receive Date: 20110627
  Receipt Date: 20110616
  Transmission Date: 20111010
  Serious: Yes (Hospitalization, Other)
  Sender: FDA-Public Use
  Company Number: US-ASTRAZENECA-2011SE36692

PATIENT
  Age: 60 Year
  Sex: Female
  Weight: 81.6 kg

DRUGS (2)
  1. SEROQUEL XR [Suspect]
     Indication: DEPRESSION
     Route: 048
  2. ANTIDEPRESSANT [Concomitant]
     Indication: DEPRESSION
     Dosage: DAILY
     Route: 048

REACTIONS (4)
  - CARDIAC OPERATION [None]
  - CORONARY ARTERY OCCLUSION [None]
  - CEREBROVASCULAR ACCIDENT [None]
  - TUMOUR EMBOLISM [None]
